FAERS Safety Report 20044320 (Version 2)
Quarter: 2022Q1

REPORT INFORMATION
  Report Type: Spontaneous
  Country: US (occurrence: US)
  Receive Date: 20211108
  Receipt Date: 20220103
  Transmission Date: 20220423
  Serious: No
  Sender: FDA-Public Use
  Company Number: US-009507513-1810USA005796

PATIENT
  Sex: Female
  Weight: 98.866 kg

DRUGS (9)
  1. NASONEX [Suspect]
     Active Substance: MOMETASONE FUROATE
     Indication: Rhinitis allergic
     Dosage: 50 MCG/ACTUATION SPRAY, NON AEROSOL IN DOSE: 1 SPRAY IN EACH NOSTRIL (TOTAL AMOUNT 100MCG), FREQUENC
     Dates: start: 20081108
  2. PRINIVIL [Concomitant]
     Active Substance: LISINOPRIL
     Indication: Hypertension
     Dosage: UNK
     Route: 048
     Dates: start: 20080505
  3. ASPIRIN [Concomitant]
     Active Substance: ASPIRIN
     Indication: Cardiac disorder
     Dosage: UNK
     Route: 048
     Dates: start: 2010
  4. CETIRIZINE [Concomitant]
     Active Substance: CETIRIZINE HYDROCHLORIDE
     Indication: Hypersensitivity
     Dosage: UNK
     Route: 048
     Dates: start: 20081108
  5. CARDIZEN [Concomitant]
     Indication: Hypertension
     Dosage: UNK
     Route: 048
     Dates: start: 2008
  6. NOVOLIN R [Concomitant]
     Active Substance: INSULIN HUMAN
     Dosage: 100 UNIT/ML, SOLUTION
     Dates: start: 20080505
  7. NOVOLIN N [Concomitant]
     Active Substance: INSULIN HUMAN
     Indication: Diabetes mellitus
     Dosage: INJECT 26 UNITS SUB-Q TWICE DAILY BEFORE MEALS
     Route: 058
     Dates: start: 20080505
  8. OMEPRAZOLE [Concomitant]
     Active Substance: OMEPRAZOLE
     Indication: Gastrooesophageal reflux disease
     Dosage: TAKE 1 CAP (20MG) BY MOUTH 2X DAILY
     Route: 048
     Dates: start: 2010
  9. SUDOGEST [Concomitant]
     Active Substance: PSEUDOEPHEDRINE HYDROCHLORIDE
     Indication: Rhinitis allergic
     Dosage: UNK
     Route: 048
     Dates: start: 20081108

REACTIONS (2)
  - Drug ineffective for unapproved indication [Unknown]
  - Product use in unapproved indication [Unknown]

NARRATIVE: CASE EVENT DATE: 20081108
